FAERS Safety Report 4960789-X (Version None)
Quarter: 2006Q2

REPORT INFORMATION
  Report Type: 
  Country: None (occurrence: None)
  Receive Date: 20060403
  Receipt Date: 20051026
  Transmission Date: 20061013
  Serious: Yes (Death, Hospitalization)
  Sender: FDA-Public Use
  Company Number: US-MERCK-0510USA09744

PATIENT
  Age: 70 Year
  Sex: Female
  Weight: 39 kg

DRUGS (1)
  1. VIOXX [Suspect]
     Indication: ARTHRITIS
     Route: 048
     Dates: start: 20020101, end: 20020101

REACTIONS (6)
  - ANGINA PECTORIS [None]
  - ANXIETY [None]
  - CAROTID ARTERY OCCLUSION [None]
  - DEATH [None]
  - DEPRESSION [None]
  - PNEUMONIA [None]
